FAERS Safety Report 13037331 (Version 4)
Quarter: 2017Q1

REPORT INFORMATION
  Report Type: Spontaneous
  Country: CA (occurrence: CA)
  Receive Date: 20161216
  Receipt Date: 20170104
  Transmission Date: 20170428
  Serious: Yes (Other)
  Sender: FDA-Public Use
  Company Number: CA-BIOMARINAP-CA-2016-112169

PATIENT
  Age: 14 Year
  Sex: Female
  Weight: 38.7 kg

DRUGS (3)
  1. ALDURAZYME [Suspect]
     Active Substance: LARONIDASE
     Dosage: 0.59 MG/KG, QW
     Route: 041
     Dates: start: 201612, end: 201612
  2. ALDURAZYME [Suspect]
     Active Substance: LARONIDASE
     Dosage: 0.59 MG/KG, QW
     Route: 041
     Dates: start: 201612
  3. ALDURAZYME [Suspect]
     Active Substance: LARONIDASE
     Indication: MUCOPOLYSACCHARIDOSIS I
     Dosage: 0.59 MG, QW
     Route: 041
     Dates: start: 20110527, end: 20161129

REACTIONS (8)
  - Infusion site pain [Recovering/Resolving]
  - Oral herpes [Recovering/Resolving]
  - Anxiety [Unknown]
  - Erythema [Recovering/Resolving]
  - Complication associated with device [Not Recovered/Not Resolved]
  - Peripheral swelling [Not Recovered/Not Resolved]
  - Application site pruritus [Recovering/Resolving]
  - Infusion site erythema [Recovering/Resolving]
